FAERS Safety Report 10137148 (Version 1)
Quarter: 2014Q2

REPORT INFORMATION
  Report Type: Report from Study
  Country: US (occurrence: US)
  Receive Date: 20140429
  Receipt Date: 20140429
  Transmission Date: 20141212
  Serious: No
  Sender: FDA-Public Use
  Company Number: US-ABBVIE-14P-163-1208481-00

PATIENT
  Sex: Male
  Weight: 69.92 kg

DRUGS (2)
  1. ANDROGEL STICK PACK 2.5G [Suspect]
     Indication: PRODUCT USED FOR UNKNOWN INDICATION
     Dosage: TWO (2.5GRM) PACKET DAILY
     Route: 061
     Dates: start: 2012
  2. ANDROGEL [Suspect]
     Indication: PRODUCT USED FOR UNKNOWN INDICATION
     Dosage: 5 GRAM PACKET DAILY
     Route: 061
     Dates: end: 2012

REACTIONS (5)
  - Drug administered at inappropriate site [Not Recovered/Not Resolved]
  - Application site rash [Unknown]
  - Drug administered at inappropriate site [Not Recovered/Not Resolved]
  - Application site erythema [Unknown]
  - Application site pruritus [Unknown]
